FAERS Safety Report 25051170 (Version 1)
Quarter: 2025Q1

REPORT INFORMATION
  Report Type: Spontaneous
  Country: US (occurrence: US)
  Receive Date: 20250307
  Receipt Date: 20250307
  Transmission Date: 20250409
  Serious: No
  Sender: BAYER HEALTHCARE PHARMACEUTICALS INC.
  Company Number: US-BAYER-2025A028633

PATIENT
  Sex: Female

DRUGS (4)
  1. MIRENA [Suspect]
     Active Substance: LEVONORGESTREL
     Indication: Intrauterine contraception
     Dosage: 20?G/DAY
     Route: 015
     Dates: start: 201903
  2. MIRENA [Suspect]
     Active Substance: LEVONORGESTREL
     Indication: Heavy menstrual bleeding
  3. LETROZOLE [Concomitant]
     Active Substance: LETROZOLE
  4. KISQALI [Concomitant]
     Active Substance: RIBOCICLIB

REACTIONS (4)
  - Dizziness [None]
  - Fatigue [None]
  - Asthenia [None]
  - Vision blurred [None]
